FAERS Safety Report 19025145 (Version 1)
Quarter: 2021Q1

REPORT INFORMATION
  Report Type: Spontaneous
  Country: FI (occurrence: FI)
  Receive Date: 20210318
  Receipt Date: 20210318
  Transmission Date: 20210420
  Serious: Yes (Disabling)
  Sender: FDA-Public Use
  Company Number: FI-ORGANON-O2103FIN001584

PATIENT
  Age: 68 Year
  Sex: Female

DRUGS (3)
  1. COZAAR COMP [Suspect]
     Active Substance: HYDROCHLOROTHIAZIDE\LOSARTAN POTASSIUM
     Indication: HYPERTENSION
     Dosage: 2,DF,DAILY
     Route: 048
     Dates: start: 20210122, end: 20210209
  2. KLIOGEST [Concomitant]
     Active Substance: ESTROGENS
     Indication: MENOPAUSAL DISORDER
     Dosage: 1,DF,DAILY
     Route: 048
     Dates: start: 2013
  3. ESTRENA [Concomitant]
     Active Substance: ESTRADIOL
     Indication: MENOPAUSAL DISORDER
     Dosage: UNK
     Route: 061
     Dates: start: 2014

REACTIONS (7)
  - Tremor [Recovered/Resolved]
  - Blood pressure increased [Recovered/Resolved]
  - Therapeutic response changed [Recovered/Resolved]
  - Heart rate abnormal [Recovered/Resolved]
  - Palpitations [Recovered/Resolved]
  - Feeling abnormal [Recovered/Resolved]
  - Arrhythmia [Recovered/Resolved]

NARRATIVE: CASE EVENT DATE: 20210209
